FAERS Safety Report 18202308 (Version 1)
Quarter: 2020Q3

REPORT INFORMATION
  Report Type: Spontaneous
  Country: US (occurrence: US)
  Receive Date: 20200827
  Receipt Date: 20200827
  Transmission Date: 20201103
  Serious: No
  Sender: FDA-Public Use
  Company Number: None

PATIENT

DRUGS (2)
  1. RESTASIS [Suspect]
     Active Substance: CYCLOSPORINE
  2. REFRESH [Suspect]
     Active Substance: UNSPECIFIED INGREDIENT

REACTIONS (4)
  - Product packaging confusion [None]
  - Product storage error [None]
  - Wrong drug [None]
  - Circumstance or information capable of leading to medication error [None]
